FAERS Safety Report 4863340-8 (Version None)
Quarter: 2005Q4

REPORT INFORMATION
  Report Type: 
  Country: None (occurrence: None)
  Receive Date: 20051222
  Receipt Date: 20051215
  Transmission Date: 20060501
  Serious: Yes (Other)
  Sender: FDA-Public Use
  Company Number: 2005UW18827

PATIENT
  Age: 77 Year
  Sex: Female
  Weight: 65.8 kg

DRUGS (11)
  1. TOPROL-XL [Suspect]
     Indication: HYPERTENSION
     Route: 048
  2. TOPROL-XL [Suspect]
     Route: 048
     Dates: start: 20050101, end: 20051101
  3. TOPROL-XL [Suspect]
     Route: 048
     Dates: start: 20051101
  4. AVAPRO [Concomitant]
  5. EVISTA [Concomitant]
  6. VITAMINS [Concomitant]
  7. LEVOTHROID [Concomitant]
  8. GLUCOSAMINE [Concomitant]
  9. ASPIRIN [Concomitant]
  10. MAGNESIUM [Concomitant]
  11. CALCIUM GLUCONATE [Concomitant]

REACTIONS (2)
  - CARDIAC DISORDER [None]
  - INSOMNIA [None]
